FAERS Safety Report 20787645 (Version 5)
Quarter: 2022Q3

REPORT INFORMATION
  Report Type: Report from Study
  Country: US (occurrence: US)
  Receive Date: 20220505
  Receipt Date: 20220811
  Transmission Date: 20221026
  Serious: No
  Sender: FDA-Public Use
  Company Number: US-NOVARTISTESTPH-NVSC2022US102710

PATIENT
  Sex: Female

DRUGS (1)
  1. ENTRESTO [Suspect]
     Active Substance: SACUBITRIL\VALSARTAN
     Indication: Product used for unknown indication
     Dosage: 1 DOSAGE FORM, BID
     Route: 048
     Dates: start: 20220407

REACTIONS (10)
  - Decreased appetite [Unknown]
  - Dyspnoea [Unknown]
  - Joint swelling [Unknown]
  - Fluid retention [Unknown]
  - Weight increased [Unknown]
  - Nasopharyngitis [Unknown]
  - Upper-airway cough syndrome [Recovering/Resolving]
  - Sinusitis [Recovering/Resolving]
  - Asthenia [Recovering/Resolving]
  - Cough [Unknown]
